FAERS Safety Report 8359994-4 (Version None)
Quarter: 2012Q2

REPORT INFORMATION
  Report Type: 
  Country: None (occurrence: None)
  Receive Date: 20120515
  Receipt Date: 20120510
  Transmission Date: 20120825
  Serious: Yes (Death, Other)
  Sender: FDA-Public Use
  Company Number: JP-ASTRAZENECA-2012SE28570

PATIENT
  Age: 47 Year
  Sex: Male
  Weight: 103 kg

DRUGS (2)
  1. ADRENAL HORMONE PREPARATIONS [Concomitant]
     Route: 065
  2. DIPRIVAN [Suspect]
     Route: 042
     Dates: start: 20120501

REACTIONS (3)
  - PROPOFOL INFUSION SYNDROME [None]
  - MYOGLOBIN URINE PRESENT [None]
  - PYREXIA [None]
